FAERS Safety Report 5719914-5 (Version None)
Quarter: 2008Q2

REPORT INFORMATION
  Report Type: 
  Country: None (occurrence: None)
  Receive Date: 20080428
  Receipt Date: 20080423
  Transmission Date: 20081010
  Serious: Yes (Life-Threatening, Hospitalization)
  Sender: FDA-Public Use
  Company Number: PHRM2008FR01096

PATIENT
  Age: 36 Year
  Sex: Female

DRUGS (9)
  1. SYNTOCINON [Suspect]
     Dosage: 10 IU, UNK
     Route: 040
  2. SYNTOCINON [Suspect]
     Dosage: 10 IU/18 MLS/HR
     Dates: end: 20080303
  3. SYNTOCINON [Suspect]
     Dosage: 5 IU, ONCE/SINGLE/15ML/HR
     Dates: start: 20080301, end: 20080301
  4. SYNTOCINON [Suspect]
     Dosage: 5 IU, ONCE/SINGLE/30ML/HR
     Route: 042
     Dates: start: 20080301
  5. SYNTOCINON [Suspect]
     Dosage: 5 IU, ONCE/SINGLE/45ML/HR
     Dates: start: 20080301
  6. SYNTOCINON [Suspect]
     Dosage: 5 IU, ONCE/SINGLE
     Route: 040
     Dates: start: 20080301, end: 20080301
  7. SYNTOCINON [Suspect]
     Dosage: 10 IU, ONCE/SINGLE
     Dates: start: 20080302, end: 20080303
  8. CELESTONE [Concomitant]
     Indication: PREMATURE LABOUR
     Dates: start: 20080227
  9. ALBUTEROL [Concomitant]
     Indication: PREMATURE LABOUR
     Dates: start: 20080227

REACTIONS (9)
  - DRUG INEFFECTIVE [None]
  - HAEMOGLOBIN DECREASED [None]
  - HEART RATE INCREASED [None]
  - HYPOTENSION [None]
  - MASSAGE [None]
  - POSTPARTUM HAEMORRHAGE [None]
  - SHOCK HAEMORRHAGIC [None]
  - UTERINE ATONY [None]
  - UTERINE DILATION AND EVACUATION [None]
